FAERS Safety Report 15677474 (Version 1)
Quarter: 2018Q4

REPORT INFORMATION
  Report Type: Report from Study
  Country: ZA (occurrence: ZA)
  Receive Date: 20181130
  Receipt Date: 20181130
  Transmission Date: 20190205
  Serious: Yes (Life-Threatening, Hospitalization)
  Sender: FDA-Public Use
  Company Number: ZA-SAKK-2018SA322914AA

PATIENT
  Age: 73 Year
  Sex: Male

DRUGS (2)
  1. OPTISULIN (INSULIN GLARGINE) [Suspect]
     Active Substance: INSULIN GLARGINE
     Dosage: 10 U, BED TIME
     Dates: start: 20181106
  2. NO STUDY DRUG GIVEN [Suspect]
     Active Substance: UNSPECIFIED INGREDIENT
     Dosage: UNK

REACTIONS (2)
  - Coma [Not Recovered/Not Resolved]
  - Blood glucose decreased [Not Recovered/Not Resolved]
